FAERS Safety Report 5515628-5 (Version None)
Quarter: 2007Q4

REPORT INFORMATION
  Report Type: 
  Country: None (occurrence: None)
  Receive Date: 20071113
  Receipt Date: 20070712
  Transmission Date: 20080405
  Serious: No
  Sender: FDA-Public Use
  Company Number: A0663695A

PATIENT
  Age: 81 Year
  Sex: Male

DRUGS (18)
  1. COREG [Suspect]
     Route: 048
  2. CONCERTA [Concomitant]
  3. LANTUS [Concomitant]
  4. METFORMIN HCL [Concomitant]
  5. ACTOS [Concomitant]
  6. PRANDIN [Concomitant]
  7. WARFARIN SODIUM [Concomitant]
  8. HYZAAR [Concomitant]
  9. LASIX [Concomitant]
  10. L-THYROXINE [Concomitant]
  11. PREVACID [Concomitant]
  12. ZOCOR [Concomitant]
  13. AZMACORT [Concomitant]
  14. CELEBREX [Concomitant]
  15. ASPIRIN [Concomitant]
  16. MSM [Concomitant]
  17. GLUCOSAMINE [Concomitant]
  18. CHONDROITIN [Concomitant]

REACTIONS (1)
  - FATIGUE [None]
